FAERS Safety Report 7399478-3 (Version None)
Quarter: 2011Q1

REPORT INFORMATION
  Report Type: 
  Country: None (occurrence: None)
  Receive Date: 20110328
  Receipt Date: 20110316
  Transmission Date: 20110831
  Serious: Yes (Hospitalization)
  Sender: FDA-Public Use
  Company Number: 2011SP011903

PATIENT
  Age: 26 Year
  Sex: Female
  Weight: 50 kg

DRUGS (6)
  1. PEGINTERFERON ALFA-2A [Concomitant]
  2. PEGINTERFERON ALFA-2A [Concomitant]
  3. VALPROIC AICD [Concomitant]
  4. RIBAVIRIN [Suspect]
     Indication: HEPATITIS C
     Dosage: 1000 MG
     Dates: start: 20100709, end: 20100901
  5. RIBAVIRIN [Suspect]
     Indication: HEPATITIS C
     Dosage: 1000 MG
     Dates: start: 20101001, end: 20101130
  6. GABAPENTIN [Concomitant]

REACTIONS (2)
  - HEPATOCELLULAR INJURY [None]
  - HEPATOTOXICITY [None]
